FAERS Safety Report 9459947 (Version 2)
Quarter: 2013Q3

REPORT INFORMATION
  Report Type: Spontaneous
  Country: US (occurrence: None)
  Receive Date: 20130812
  Receipt Date: 20130828
  Transmission Date: 20140515
  Serious: Yes (Death, Hospitalization, Other)
  Sender: FDA-Public Use
  Company Number: JPI-P-034172

PATIENT
  Age: 64 Year
  Sex: Female

DRUGS (9)
  1. XYREM [Suspect]
     Indication: NARCOLEPSY
     Route: 048
     Dates: start: 20051212
  2. XYREM [Suspect]
     Indication: SENILE DEMENTIA
     Route: 048
     Dates: start: 20051212
  3. SPIRONOLACTONE (SPRIONOLACTONE) [Concomitant]
  4. PROTONIX (PANTOPRAZOLE SODIUM SESQUIHYDRATE) [Concomitant]
  5. LISINOPRIL (LISINOPRIL) [Concomitant]
  6. LEVAQUIN (LEVOFLOXACIN) [Concomitant]
  7. PROSCAR [Concomitant]
  8. LOVENOX (ENOXAPARIN SODIUM) [Concomitant]
  9. SINEMET (CARBIDOPA, LEVODOPA) [Concomitant]

REACTIONS (3)
  - Myocardial infarction [None]
  - Pulmonary embolism [None]
  - Acute myocardial infarction [None]
